FAERS Safety Report 12672832 (Version 1)
Quarter: 2016Q3

REPORT INFORMATION
  Report Type: Spontaneous
  Country: US (occurrence: US)
  Receive Date: 20160822
  Receipt Date: 20160822
  Transmission Date: 20161109
  Serious: No
  Sender: FDA-Public Use
  Company Number: US-JNJFOC-20160802005

PATIENT
  Sex: Female

DRUGS (3)
  1. MENS ROGAINE EXTRA STRENGTH [Suspect]
     Active Substance: MINOXIDIL
     Route: 061
  2. NIZORAL A-D [Concomitant]
     Active Substance: KETOCONAZOLE
     Indication: PRODUCT USED FOR UNKNOWN INDICATION
     Route: 065
  3. MENS ROGAINE EXTRA STRENGTH [Suspect]
     Active Substance: MINOXIDIL
     Indication: ALOPECIA
     Dosage: AROUND HALF A CAP FUL, AT LEAST ONCE A DAY
     Route: 061
     Dates: start: 1999

REACTIONS (5)
  - Off label use [Not Recovered/Not Resolved]
  - Medication residue present [Not Recovered/Not Resolved]
  - Product use issue [Not Recovered/Not Resolved]
  - Pruritus [Not Recovered/Not Resolved]
  - Application site irritation [Not Recovered/Not Resolved]
